FAERS Safety Report 6251110-8 (Version None)
Quarter: 2009Q2

REPORT INFORMATION
  Report Type: 
  Country: None (occurrence: None)
  Receive Date: 20090630
  Receipt Date: 20090619
  Transmission Date: 20091009
  Serious: Yes (Hospitalization, Other)
  Sender: FDA-Public Use
  Company Number: US-AMGEN-QUU330955

PATIENT
  Sex: Female

DRUGS (2)
  1. ENBREL [Suspect]
     Indication: RHEUMATOID ARTHRITIS
     Route: 058
     Dates: start: 19990112
  2. PLAQUENIL [Concomitant]
     Route: 048

REACTIONS (10)
  - ARTHRALGIA [None]
  - DECUBITUS ULCER [None]
  - GAIT DISTURBANCE [None]
  - INJECTION SITE HAEMORRHAGE [None]
  - JOINT STIFFNESS [None]
  - NERVE INJURY [None]
  - PAIN [None]
  - RHEUMATOID ARTHRITIS [None]
  - SPINAL CORD HERNIATION [None]
  - THERAPEUTIC RESPONSE DECREASED [None]
